FAERS Safety Report 4943632-4 (Version None)
Quarter: 2006Q1

REPORT INFORMATION
  Report Type: 
  Country: None (occurrence: None)
  Receive Date: 20060310
  Receipt Date: 20060301
  Transmission Date: 20060701
  Serious: Yes (Other)
  Sender: FDA-Public Use
  Company Number: 2006-03-0012

PATIENT
  Age: 46 Year
  Sex: Male

DRUGS (2)
  1. VIRAFERON (INTEFERON ALFA-2B) INJECTABLE [Suspect]
     Indication: HEPATITIS C VIRUS
  2. RIBAVIRIN [Suspect]
     Indication: HEPATITIS C VIRUS
     Dosage: ORAL
     Route: 048

REACTIONS (6)
  - HYPERTENSION [None]
  - RETINAL EXUDATES [None]
  - RETINAL HAEMORRHAGE [None]
  - RETINOPATHY [None]
  - VISION BLURRED [None]
  - VISUAL ACUITY REDUCED [None]
